FAERS Safety Report 17995038 (Version 2)
Quarter: 2020Q3

REPORT INFORMATION
  Report Type: Other
  Country: US (occurrence: US)
  Receive Date: 20200708
  Receipt Date: 20200909
  Transmission Date: 20201103
  Serious: Yes (Death, Hospitalization, Congenital Anomaly, Other)
  Sender: FDA-Public Use
  Company Number: US-AMAG PHARMACEUTICALS, INC.-AMAG202002306

PATIENT
  Age: 0 Day
  Sex: Female
  Weight: .43 kg

DRUGS (1)
  1. MAKENA [Suspect]
     Active Substance: HYDROXYPROGESTERONE CAPROATE
     Indication: FOETAL EXPOSURE DURING PREGNANCY
     Route: 064
     Dates: start: 20200416, end: 20200625

REACTIONS (10)
  - Patent ductus arteriosus [Recovered/Resolved]
  - Foetal growth restriction [Recovered/Resolved]
  - Infantile genetic agranulocytosis [Recovered/Resolved]
  - Respiratory failure [Fatal]
  - Newborn persistent pulmonary hypertension [Fatal]
  - Congenital anaemia [Not Recovered/Not Resolved]
  - Sepsis neonatal [Not Recovered/Not Resolved]
  - Hypoglycaemia neonatal [Not Recovered/Not Resolved]
  - Thrombocytopenia [Not Recovered/Not Resolved]
  - Premature baby [Not Recovered/Not Resolved]

NARRATIVE: CASE EVENT DATE: 20200625
